FAERS Safety Report 6843483-X (Version None)
Quarter: 2010Q3

REPORT INFORMATION
  Report Type: 
  Country: None (occurrence: None)
  Receive Date: 20100707
  Receipt Date: 20100707
  Transmission Date: 20110219
  Serious: No
  Sender: FDA-Public Use
  Company Number: None

PATIENT

DRUGS (1)
  1. MELOXICAM [Suspect]
     Dosage: 15 MG (1 PILL)

REACTIONS (5)
  - ABDOMINAL DISCOMFORT [None]
  - BALANCE DISORDER [None]
  - DIZZINESS [None]
  - HEADACHE [None]
  - RESPIRATORY DISORDER [None]
